FAERS Safety Report 22079682 (Version 6)
Quarter: 2023Q2

REPORT INFORMATION
  Report Type: Report from Study
  Country: DE (occurrence: DE)
  Receive Date: 20230309
  Receipt Date: 20230531
  Transmission Date: 20230721
  Serious: Yes (Hospitalization)
  Sender: FDA-Public Use
  Company Number: DE-JNJFOC-20230306236

PATIENT
  Age: 63 Year
  Sex: Female
  Weight: 63 kg

DRUGS (4)
  1. TECLISTAMAB [Suspect]
     Active Substance: TECLISTAMAB
     Indication: Plasma cell myeloma
     Dosage: WITH MOST RECENT DOSE ON 02-MAY-2023; MED KIT NUMBER: 30095
     Route: 058
     Dates: start: 20230208
  2. DARATUMUMAB [Suspect]
     Active Substance: DARATUMUMAB
     Indication: Plasma cell myeloma
     Dosage: WITH MOST RECENT DOSE ON 25-APR-2023; MED KIT NUMBER: 10290
     Route: 058
     Dates: start: 20230207, end: 20230221
  3. DEXAMETHASONE [Suspect]
     Active Substance: DEXAMETHASONE
     Indication: Plasma cell myeloma
     Dosage: WITH MOST RECENT DOSE ON 23-APR-2023; D1-4, D9-12
     Route: 048
     Dates: start: 20230221
  4. LENALIDOMIDE [Suspect]
     Active Substance: LENALIDOMIDE
     Route: 048
     Dates: start: 20230315, end: 20230502

REACTIONS (1)
  - Cytomegalovirus infection reactivation [Recovered/Resolved]

NARRATIVE: CASE EVENT DATE: 20230227
